FAERS Safety Report 16148083 (Version 1)
Quarter: 2019Q2

REPORT INFORMATION
  Report Type: Report from Study
  Country: FR (occurrence: FR)
  Receive Date: 20190402
  Receipt Date: 20190402
  Transmission Date: 20190711
  Serious: Yes (Hospitalization)
  Sender: FDA-Public Use
  Company Number: FR-ROCHE-2286025

PATIENT

DRUGS (10)
  1. RITUXIMAB. [Suspect]
     Active Substance: RITUXIMAB
     Indication: GRANULOMATOSIS WITH POLYANGIITIS
     Route: 042
  2. AZATHIOPRINE. [Suspect]
     Active Substance: AZATHIOPRINE
     Indication: GRANULOMATOSIS WITH POLYANGIITIS
     Route: 065
  3. METHOTREXATE. [Suspect]
     Active Substance: METHOTREXATE
     Indication: GRANULOMATOSIS WITH POLYANGIITIS
     Route: 065
  4. SULFAMETHOXAZOLE/TRIMETHOPRIM [Concomitant]
     Active Substance: SULFAMETHOXAZOLE\TRIMETHOPRIM
     Indication: ANTIFUNGAL PROPHYLAXIS
     Route: 065
  5. METHYLPREDNISOLONE. [Suspect]
     Active Substance: METHYLPREDNISOLONE
     Indication: GRANULOMATOSIS WITH POLYANGIITIS
     Route: 042
  6. DEXCHLORPHENIRAMINE [Concomitant]
     Active Substance: DEXCHLORPHENIRAMINE
     Route: 065
  7. MYCOPHENOLATE MOFETIL. [Suspect]
     Active Substance: MYCOPHENOLATE MOFETIL
     Indication: GRANULOMATOSIS WITH POLYANGIITIS
     Route: 065
  8. PARACETAMOL [Concomitant]
     Active Substance: ACETAMINOPHEN
     Route: 065
  9. PREDNISONE. [Suspect]
     Active Substance: PREDNISONE
     Indication: GRANULOMATOSIS WITH POLYANGIITIS
     Route: 048
  10. CYCLOPHOSPHAMIDE. [Suspect]
     Active Substance: CYCLOPHOSPHAMIDE
     Indication: GRANULOMATOSIS WITH POLYANGIITIS
     Route: 065

REACTIONS (26)
  - Pneumonia cytomegaloviral [Unknown]
  - Gastroenteritis clostridial [Unknown]
  - Hypersensitivity [Unknown]
  - Sinusitis aspergillus [Unknown]
  - Escherichia sepsis [Unknown]
  - Herpes zoster [Unknown]
  - Macular oedema [Unknown]
  - Sepsis [Unknown]
  - Anaphylactic reaction [Unknown]
  - Pneumonia bacterial [Unknown]
  - Urinary tract infection [Unknown]
  - Subcutaneous abscess [Unknown]
  - Squamous cell carcinoma of skin [Unknown]
  - Uterine cancer [Unknown]
  - Sinusitis bacterial [Unknown]
  - Pneumocystis jirovecii pneumonia [Unknown]
  - Pyelonephritis [Unknown]
  - Ear infection [Unknown]
  - Infusion related reaction [Unknown]
  - Neutropenia [Unknown]
  - Pneumonia [Unknown]
  - Prostate cancer [Unknown]
  - Pneumonia pseudomonal [Unknown]
  - Listeria sepsis [Unknown]
  - Septic arthritis staphylococcal [Unknown]
  - Bladder cancer [Unknown]
